FAERS Safety Report 13000459 (Version 2)
Quarter: 2016Q4

REPORT INFORMATION
  Report Type: Spontaneous
  Country: FR (occurrence: FR)
  Receive Date: 20161206
  Receipt Date: 20161216
  Transmission Date: 20170207
  Serious: Yes (Hospitalization)
  Sender: FDA-Public Use
  Company Number: FR-ABBVIE-16K-056-1795534-00

PATIENT
  Age: 50 Year
  Sex: Male

DRUGS (2)
  1. HUMIRA [Suspect]
     Active Substance: ADALIMUMAB
     Indication: PRODUCT USED FOR UNKNOWN INDICATION
     Route: 058
     Dates: start: 201606, end: 201608
  2. SIMPONI [Suspect]
     Active Substance: GOLIMUMAB
     Indication: COLITIS ULCERATIVE
     Route: 058
     Dates: start: 201511, end: 201605

REACTIONS (9)
  - Migraine with aura [Recovered/Resolved]
  - Migraine [Unknown]
  - Nervous system disorder [Unknown]
  - Visual field defect [Recovered/Resolved]
  - Confusional state [Recovered/Resolved]
  - Language disorder [Recovered/Resolved]
  - Hypoaesthesia [Unknown]
  - Ataxia [Recovered/Resolved]
  - Metamorphopsia [Recovered/Resolved]

NARRATIVE: CASE EVENT DATE: 2016
